FAERS Safety Report 10757903 (Version 1)
Quarter: 2015Q1

REPORT INFORMATION
  Report Type: Spontaneous
  Country: JP (occurrence: JP)
  Receive Date: 20150203
  Receipt Date: 20150203
  Transmission Date: 20150721
  Serious: Yes (Hospitalization, Other)
  Sender: FDA-Public Use
  Company Number: JP-MYLANLABS-2015M1001738

PATIENT

DRUGS (2)
  1. UNASTIN TABLETS 60MG [Suspect]
     Active Substance: LOXOPROFEN SODIUM
     Indication: THROMBOANGIITIS OBLITERANS
     Route: 048
  2. THIAMAZOLE [Suspect]
     Active Substance: METHIMAZOLE
     Indication: BASEDOW^S DISEASE
     Dosage: UNK
     Route: 065
     Dates: start: 201404

REACTIONS (2)
  - Altered state of consciousness [None]
  - Duodenal ulcer perforation [Unknown]

NARRATIVE: CASE EVENT DATE: 201404
